FAERS Safety Report 15658401 (Version 1)
Quarter: 2018Q4

REPORT INFORMATION
  Report Type: Spontaneous
  Country: FR (occurrence: FR)
  Receive Date: 20181126
  Receipt Date: 20181126
  Transmission Date: 20190205
  Serious: Yes (Other)
  Sender: FDA-Public Use
  Company Number: FR-PFIZER INC-2018477381

PATIENT
  Age: 72 Year
  Sex: Male
  Weight: 61 kg

DRUGS (15)
  1. COLCHICINE. [Suspect]
     Active Substance: COLCHICINE
     Dosage: 1 MG, 1X/DAY
     Route: 048
     Dates: start: 2010
  2. PARACETAMOL [Suspect]
     Active Substance: ACETAMINOPHEN
  3. AVODART [Concomitant]
     Active Substance: DUTASTERIDE
  4. SMECTA [DIOSMECTITE] [Concomitant]
  5. BACTRIM [Suspect]
     Active Substance: SULFAMETHOXAZOLE\TRIMETHOPRIM
     Dosage: 3 DF, WEEKLY
     Route: 048
     Dates: start: 2009
  6. PREDNISONE. [Concomitant]
     Active Substance: PREDNISONE
  7. GLIVEC [Suspect]
     Active Substance: IMATINIB MESYLATE
     Indication: GASTROINTESTINAL STROMAL TUMOUR
     Dosage: 400 MG, 1X/DAY
     Route: 048
     Dates: start: 201806
  8. CLOPIDOGREL HYDROCHLORIDE [Suspect]
     Active Substance: CLOPIDOGREL HYDROCHLORIDE
     Dosage: 75 MG, 1X/DAY
     Route: 048
     Dates: start: 20181016
  9. ESOMEPRAZOLE MAGNESIUM. [Suspect]
     Active Substance: ESOMEPRAZOLE MAGNESIUM
     Dosage: 40 MG, 1X/DAY
     Route: 048
     Dates: start: 201502
  10. LOPERAMIDE CHLORHYDRATE [Concomitant]
     Active Substance: LOPERAMIDE HYDROCHLORIDE
  11. GABAPENTIN. [Suspect]
     Active Substance: GABAPENTIN
     Dosage: 600 MG, 1X/DAY
     Route: 048
     Dates: start: 2005
  12. ZOPICLONE [Concomitant]
     Active Substance: ZOPICLONE
  13. DIFFU K [Concomitant]
     Active Substance: POTASSIUM CHLORIDE
  14. UROREC [Concomitant]
     Active Substance: SILODOSIN
  15. CALCIDOSE [CALCIUM CARBONATE;COLECALCIFEROL] [Concomitant]
     Active Substance: CALCIUM CARBONATE\CHOLECALCIFEROL

REACTIONS (1)
  - Thrombocytopenia [Not Recovered/Not Resolved]

NARRATIVE: CASE EVENT DATE: 201808
